FAERS Safety Report 21978234 (Version 3)
Quarter: 2023Q4

REPORT INFORMATION
  Report Type: Spontaneous
  Country: GB (occurrence: GB)
  Receive Date: 20230210
  Receipt Date: 20231129
  Transmission Date: 20240110
  Serious: Yes (Death, Life-Threatening, Hospitalization, Disabling, Other)
  Sender: FDA-Public Use
  Company Number: GB-MHRA-MED-202302071617209580-QRBTK

PATIENT
  Age: 41 Year
  Sex: Female

DRUGS (4)
  1. BROMOCRIPTINE [Suspect]
     Active Substance: BROMOCRIPTINE
     Indication: Lactation insufficiency
     Dosage: 2.5 MILLIGRAM, BID
     Route: 065
     Dates: start: 20221110, end: 20221117
  2. BROMOCRIPTINE [Suspect]
     Active Substance: BROMOCRIPTINE
     Indication: Lactation disorder
  3. AMOXIL [Concomitant]
     Active Substance: AMOXICILLIN
     Indication: Lower respiratory tract infection
     Dosage: UNK
     Route: 065
     Dates: start: 20221116
  4. TINZAPARIN [Concomitant]
     Active Substance: TINZAPARIN
     Indication: Caesarean section
     Dosage: UNK
     Route: 065
     Dates: start: 2021, end: 20221109

REACTIONS (9)
  - Cerebral haemorrhage [Fatal]
  - Chest pain [Unknown]
  - Back pain [Unknown]
  - Viral infection [Unknown]
  - Blood pressure increased [Unknown]
  - Blood pressure abnormal [Unknown]
  - Somnolence [Not Recovered/Not Resolved]
  - Headache [Not Recovered/Not Resolved]
  - Maternal exposure during pregnancy [Unknown]

NARRATIVE: CASE EVENT DATE: 20221120
